FAERS Safety Report 8005029-2 (Version None)
Quarter: 2011Q4

REPORT INFORMATION
  Report Type: 
  Country: None (occurrence: None)
  Receive Date: 20111223
  Receipt Date: 20111215
  Transmission Date: 20120403
  Serious: Yes (Death)
  Sender: FDA-Public Use
  Company Number: DE-NOVOPROD-340854

PATIENT

DRUGS (1)
  1. ACTRAPID FLEXPEN [Suspect]
     Indication: OFF LABEL USE
     Route: 048

REACTIONS (3)
  - INTENTIONAL DRUG MISUSE [None]
  - COMPLETED SUICIDE [None]
  - HYPOGLYCAEMIA [None]
